FAERS Safety Report 9046971 (Version 1)
Quarter: 2013Q1

REPORT INFORMATION
  Report Type: Spontaneous
  Country: US (occurrence: US)
  Receive Date: 20130204
  Receipt Date: 20130204
  Transmission Date: 20140127
  Serious: Yes (Life-Threatening)
  Sender: FDA-Public Use
  Company Number: US-TEVA-383816USA

PATIENT
  Age: 54 Year
  Sex: Female

DRUGS (2)
  1. PROGESTERONE [Suspect]
  2. FEXOFENADINE [Concomitant]
     Dosage: SOME MORNINGS

REACTIONS (3)
  - Abnormal behaviour [Unknown]
  - Somnolence [Unknown]
  - Hallucination [Unknown]
